FAERS Safety Report 8683297 (Version 2)
Quarter: 2012Q4

REPORT INFORMATION
  Report Type: 
  Country: US (occurrence: US)
  Receive Date: 20120726
  Receipt Date: 20120911
  Transmission Date: 20130627
  Serious: No
  Sender: FDA-Public Use
  Company Number: US-PFIZER INC-2012176569

PATIENT
  Sex: Female

DRUGS (3)
  1. LYRICA [Suspect]
     Indication: INTERVERTEBRAL DISC PROTRUSION
     Dosage: UNK
     Dates: start: 20120817
  2. LYRICA [Suspect]
     Indication: NECK PAIN
  3. SELDANE [Suspect]
     Dosage: UNK

REACTIONS (1)
  - Drug intolerance [Unknown]
